FAERS Safety Report 17751686 (Version 1)
Quarter: 2020Q2

REPORT INFORMATION
  Report Type: Spontaneous
  Country: US (occurrence: US)
  Receive Date: 20200506
  Receipt Date: 20200506
  Transmission Date: 20200714
  Serious: Yes (Other)
  Sender: FDA-Public Use
  Company Number: US-PFIZER INC-2020180180

PATIENT
  Age: 61 Year
  Sex: Female
  Weight: 103.42 kg

DRUGS (1)
  1. PRISTIQ EXTENDED-RELEASE [Suspect]
     Active Substance: DESVENLAFAXINE SUCCINATE
     Dosage: 4 MG, 1X/DAY (AT NIGHT)
     Route: 048
     Dates: start: 2018

REACTIONS (4)
  - Musculoskeletal pain [Unknown]
  - Retinal tear [Recovered/Resolved]
  - Blindness [Recovered/Resolved]
  - Arthritis [Unknown]
